FAERS Safety Report 7678467-5 (Version None)
Quarter: 2011Q3

REPORT INFORMATION
  Report Type: 
  Country: None (occurrence: None)
  Receive Date: 20110811
  Receipt Date: 20110801
  Transmission Date: 20111222
  Serious: Yes (Other)
  Sender: FDA-Public Use
  Company Number: US-BAXTER-2011BH025084

PATIENT
  Age: 61 Year
  Sex: Female
  Weight: 91 kg

DRUGS (11)
  1. GAMMAGARD LIQUID [Suspect]
     Indication: ANIMAL BITE
     Route: 042
     Dates: start: 20110101, end: 20110101
  2. ALTACE [Concomitant]
     Indication: DIABETES MELLITUS
     Route: 048
  3. GAMMAGARD LIQUID [Suspect]
     Route: 042
     Dates: start: 20110706, end: 20110706
  4. MAXZIDE [Concomitant]
     Indication: PRODUCT USED FOR UNKNOWN INDICATION
     Route: 048
  5. HUMULIN 70/30 [Concomitant]
     Indication: DIABETES MELLITUS
  6. MAGNESIUM [Concomitant]
     Indication: PRODUCT USED FOR UNKNOWN INDICATION
     Route: 048
  7. GAMMAGARD LIQUID [Suspect]
     Route: 042
     Dates: start: 20110706, end: 20110706
  8. LIPITOR [Concomitant]
     Indication: HEAD INJURY
     Route: 048
  9. ASPIRIN [Concomitant]
     Indication: PRODUCT USED FOR UNKNOWN INDICATION
     Route: 048
  10. GAMMAGARD LIQUID [Suspect]
     Indication: OFF LABEL USE
     Route: 042
     Dates: start: 20110101, end: 20110101
  11. CALCIUM CARBONATE [Concomitant]
     Indication: PRODUCT USED FOR UNKNOWN INDICATION
     Route: 048

REACTIONS (7)
  - BLOOD PRESSURE INCREASED [None]
  - HEART RATE INCREASED [None]
  - DYSPNOEA [None]
  - OXYGEN SATURATION DECREASED [None]
  - RESTLESSNESS [None]
  - AGITATION [None]
  - RASH [None]
